FAERS Safety Report 4538723-6 (Version None)
Quarter: 2004Q4

REPORT INFORMATION
  Report Type: 
  Country: None (occurrence: None)
  Receive Date: 20041222
  Receipt Date: 20041208
  Transmission Date: 20050328
  Serious: Yes (Hospitalization, Other)
  Sender: FDA-Public Use
  Company Number: US_0412109030

PATIENT
  Age: 43 Year
  Sex: Male

DRUGS (2)
  1. CYMBALTA [Suspect]
     Indication: DEPRESSION
     Dosage: 60 MG DAY
     Dates: start: 20040801
  2. MULTI-VITAMIN [Concomitant]

REACTIONS (11)
  - BLINDNESS TRANSIENT [None]
  - CARDIAC ARREST [None]
  - CONFUSIONAL STATE [None]
  - DIZZINESS [None]
  - FALL [None]
  - FEELING ABNORMAL [None]
  - HEAD INJURY [None]
  - MUSCLE CRAMP [None]
  - NAUSEA [None]
  - PARALYSIS [None]
  - SYNCOPE [None]
